FAERS Safety Report 15360765 (Version 2)
Quarter: 2019Q1

REPORT INFORMATION
  Report Type: Spontaneous
  Country: FR (occurrence: FR)
  Receive Date: 20180907
  Receipt Date: 20190204
  Transmission Date: 20190417
  Serious: Yes (Hospitalization, Other)
  Sender: FDA-Public Use
  Company Number: FR-AUROBINDO-AUR-APL-2018-044855

PATIENT

DRUGS (28)
  1. CARBOPLATIN. [Suspect]
     Active Substance: CARBOPLATIN
     Indication: PRODUCT USED FOR UNKNOWN INDICATION
     Dosage: 250 UNK
     Route: 065
     Dates: start: 20180405
  2. GEMZAR [Suspect]
     Active Substance: GEMCITABINE HYDROCHLORIDE
     Dosage: 1520 MILLIGRAM
     Route: 065
     Dates: start: 20180427
  3. AVELUMAB [Suspect]
     Active Substance: AVELUMAB
     Dosage: 860 MILLIGRAM
     Route: 065
     Dates: start: 20180316
  4. GEMZAR [Suspect]
     Active Substance: GEMCITABINE HYDROCHLORIDE
     Dosage: 1520 MILLIGRAM
     Route: 065
     Dates: start: 20180504
  5. VITAMIN B1 AND B6 [Concomitant]
     Active Substance: PYRIDOXINE HYDROCHLORIDE\THIAMINE HYDROCHLORIDE
     Indication: PRODUCT USED FOR UNKNOWN INDICATION
     Dosage: UNK
     Route: 065
  6. CARBOPLATIN. [Suspect]
     Active Substance: CARBOPLATIN
     Dosage: 250 MILLIGRAM
     Route: 065
     Dates: start: 20180615
  7. CARBOPLATIN. [Suspect]
     Active Substance: CARBOPLATIN
     Dosage: 340 MILLIGRAM
     Route: 065
     Dates: start: 20180405
  8. CISPLATIN. [Suspect]
     Active Substance: CISPLATIN
     Indication: PRODUCT USED FOR UNKNOWN INDICATION
     Dosage: 140 MILLIGRAM
     Route: 065
     Dates: start: 20180316, end: 20180316
  9. GEMZAR [Suspect]
     Active Substance: GEMCITABINE HYDROCHLORIDE
     Indication: PRODUCT USED FOR UNKNOWN INDICATION
     Dosage: 1480 UNK
     Route: 065
     Dates: start: 20180316
  10. GEMZAR [Suspect]
     Active Substance: GEMCITABINE HYDROCHLORIDE
     Dosage: 1500 MILLIGRAM
     Route: 065
     Dates: start: 20180525
  11. AVELUMAB [Suspect]
     Active Substance: AVELUMAB
     Indication: PRODUCT USED FOR UNKNOWN INDICATION
     Dosage: 790 UNK
     Route: 065
     Dates: start: 20180316
  12. AVELUMAB [Suspect]
     Active Substance: AVELUMAB
     Dosage: 850 MILLIGRAM
     Route: 065
     Dates: start: 20180427
  13. GEMZAR [Suspect]
     Active Substance: GEMCITABINE HYDROCHLORIDE
     Dosage: 1530 MILLIGRAM
     Route: 065
     Dates: start: 20180405
  14. AVELUMAB [Suspect]
     Active Substance: AVELUMAB
     Dosage: 820 MILLIGRAM
     Route: 065
     Dates: start: 20180518
  15. ZOPHREN [Concomitant]
     Active Substance: ONDANSETRON
     Indication: PRODUCT USED FOR UNKNOWN INDICATION
     Dosage: UNK
     Route: 065
  16. GEMZAR [Suspect]
     Active Substance: GEMCITABINE HYDROCHLORIDE
     Dosage: 1520 MILLIGRAM
     Route: 065
     Dates: start: 20180518
  17. GEMZAR [Suspect]
     Active Substance: GEMCITABINE HYDROCHLORIDE
     Dosage: 1460 MILLIGRAM
     Route: 065
     Dates: start: 20180622
  18. GEMZAR [Suspect]
     Active Substance: GEMCITABINE HYDROCHLORIDE
     Dosage: 1480 MILLIGRAM
     Route: 065
     Dates: start: 20180615
  19. ERYTHROPOIETIN [Concomitant]
     Active Substance: ERYTHROPOIETIN
     Indication: PRODUCT USED FOR UNKNOWN INDICATION
     Dosage: UNK
     Route: 065
  20. AMLOR [Concomitant]
     Active Substance: AMLODIPINE BESYLATE
     Indication: PRODUCT USED FOR UNKNOWN INDICATION
     Dosage: UNK
     Route: 065
  21. CARBOPLATIN. [Suspect]
     Active Substance: CARBOPLATIN
     Dosage: 320 MILLIGRAM
     Route: 065
     Dates: start: 20180427
  22. CARBOPLATIN. [Suspect]
     Active Substance: CARBOPLATIN
     Dosage: 390 MILLIGRAM
     Route: 065
     Dates: start: 20180518
  23. GEMZAR [Suspect]
     Active Substance: GEMCITABINE HYDROCHLORIDE
     Dosage: 2040 MILLIGRAM
     Route: 065
     Dates: start: 20180316
  24. GEMZAR [Suspect]
     Active Substance: GEMCITABINE HYDROCHLORIDE
     Dosage: 1520 MILLIGRAM
     Route: 065
     Dates: start: 20180413
  25. AVELUMAB [Suspect]
     Active Substance: AVELUMAB
     Dosage: 790 MILLIGRAM
     Route: 065
     Dates: start: 20180615
  26. GEMZAR [Suspect]
     Active Substance: GEMCITABINE HYDROCHLORIDE
     Dosage: 2080 MILLIGRAM
     Route: 065
     Dates: start: 20180323
  27. AVELUMAB [Suspect]
     Active Substance: AVELUMAB
     Dosage: 860 MILLIGRAM
     Route: 065
     Dates: start: 20180405
  28. INNOHEP [Concomitant]
     Active Substance: TINZAPARIN SODIUM
     Indication: PULMONARY EMBOLISM
     Dosage: UNK
     Route: 065

REACTIONS (4)
  - Nausea [Recovered/Resolved with Sequelae]
  - Renal failure [Recovered/Resolved with Sequelae]
  - Condition aggravated [Recovered/Resolved with Sequelae]
  - Vomiting [Recovered/Resolved with Sequelae]

NARRATIVE: CASE EVENT DATE: 20180625
